FAERS Safety Report 11474195 (Version 1)
Quarter: 2015Q3

REPORT INFORMATION
  Report Type: Spontaneous
  Country: US (occurrence: None)
  Receive Date: 20150902
  Receipt Date: 20150902
  Transmission Date: 20151125
  Serious: Yes (Hospitalization)
  Sender: FDA-Public Use
  Company Number: A-NJ2015-119048

PATIENT
  Age: 60 Year
  Sex: Female

DRUGS (3)
  1. VELETRI [Suspect]
     Active Substance: EPOPROSTENOL
     Indication: PULMONARY ARTERIAL HYPERTENSION
     Dosage: 48 NG/KG, PER MIN, INTRAVENOUS
     Route: 042
     Dates: start: 20140904
  2. ADCIRCA [Concomitant]
     Active Substance: TADALAFIL
  3. COUMADIN [Concomitant]
     Active Substance: WARFARIN SODIUM

REACTIONS (8)
  - Syncope [None]
  - Nausea [None]
  - Asthenia [None]
  - Drug dose omission [None]
  - Hypotension [None]
  - Flushing [None]
  - Dizziness [None]
  - Device malfunction [None]

NARRATIVE: CASE EVENT DATE: 20150517
